FAERS Safety Report 22587552 (Version 1)
Quarter: 2023Q2

REPORT INFORMATION
  Report Type: Report from Study
  Country: US (occurrence: US)
  Receive Date: 20230612
  Receipt Date: 20230612
  Transmission Date: 20230722
  Serious: Yes (Other)
  Sender: FDA-Public Use
  Company Number: US-UCBSA-2022026514

PATIENT
  Age: 43 Year
  Sex: Male

DRUGS (2)
  1. LACOSAMIDE [Suspect]
     Active Substance: LACOSAMIDE
     Indication: Seizure
     Dosage: 150 MILLIGRAM, 2X/DAY (BID)
  2. LACOSAMIDE [Suspect]
     Active Substance: LACOSAMIDE
     Indication: Epilepsy
     Dosage: 200 MILLIGRAM, 2X/DAY (BID)
     Route: 048
     Dates: start: 20230606

REACTIONS (5)
  - Seizure [Unknown]
  - Urethral stenosis [Unknown]
  - Therapy interrupted [Unknown]
  - Product availability issue [Unknown]
  - Inguinal mass [Not Recovered/Not Resolved]

NARRATIVE: CASE EVENT DATE: 20220501
